FAERS Safety Report 9234037 (Version 1)
Quarter: 2013Q2

REPORT INFORMATION
  Report Type: Spontaneous
  Country: JP (occurrence: JP)
  Receive Date: 20130416
  Receipt Date: 20130416
  Transmission Date: 20140414
  Serious: Yes (Hospitalization)
  Sender: FDA-Public Use
  Company Number: JP-PFIZER INC-2013113889

PATIENT
  Age: 38 Year
  Sex: Male

DRUGS (5)
  1. GABAPENTIN [Suspect]
     Indication: EPILEPSY
     Dosage: 1800 MG DAILY
     Route: 048
  2. GABAPENTIN [Suspect]
     Dosage: 10000 AT A TIME
     Route: 048
  3. PHENOBARBITAL [Suspect]
     Indication: EPILEPSY
     Dosage: 180 MG DAILY
     Route: 048
  4. PHENOBARBITAL [Suspect]
     Dosage: 3000MG AT A TIME
     Route: 048
  5. LEVETIRACETAM [Concomitant]
     Indication: EPILEPSY
     Dosage: 1000 MG DAILY
     Route: 048

REACTIONS (3)
  - Overdose [Unknown]
  - Toxicity to various agents [Recovering/Resolving]
  - Depressed level of consciousness [Recovering/Resolving]
